FAERS Safety Report 9413358 (Version 1)
Quarter: 2013Q3

REPORT INFORMATION
  Report Type: Spontaneous
  Country: FR (occurrence: None)
  Receive Date: 20130718
  Receipt Date: 20130718
  Transmission Date: 20140515
  Serious: Yes (Death)
  Sender: FDA-Public Use
  Company Number: 1754261

PATIENT
  Age: 80 Year
  Sex: Male

DRUGS (2)
  1. CARBOPLATIN [Suspect]
     Indication: SMALL CELL LUNG CANCER METASTATIC
     Route: 041
     Dates: start: 20120601, end: 20120606
  2. ETOPOSIDE TEVA [Suspect]
     Indication: SMALL CELL LUNG CANCER METASTATIC
     Route: 041
     Dates: start: 20120601, end: 20120602

REACTIONS (9)
  - Pancytopenia [None]
  - Septic shock [None]
  - Multi-organ failure [None]
  - Respiratory failure [None]
  - Renal failure [None]
  - Circulatory collapse [None]
  - Pneumonia [None]
  - Streptococcal bacteraemia [None]
  - Haematotoxicity [None]
